FAERS Safety Report 9359018 (Version 2)
Quarter: 2013Q2

REPORT INFORMATION
  Report Type: Spontaneous
  Country: US (occurrence: US)
  Receive Date: 20130620
  Receipt Date: 20130626
  Transmission Date: 20140414
  Serious: Yes (Hospitalization, Other)
  Sender: FDA-Public Use
  Company Number: US-BAXTER-2013BAX022707

PATIENT
  Age: 47 Year
  Sex: Female

DRUGS (8)
  1. DIANEAL LOW CALCIUM [Suspect]
     Indication: PERITONEAL DIALYSIS
     Route: 033
     Dates: start: 20130208, end: 20130402
  2. DIANEAL LOW CALCIUM [Suspect]
     Route: 033
     Dates: start: 20130402, end: 20130604
  3. DIANEAL LOW CALCIUM [Suspect]
     Indication: PERITONEAL DIALYSIS
     Route: 033
     Dates: start: 20130208, end: 20130402
  4. DIANEAL LOW CALCIUM [Suspect]
     Route: 033
     Dates: start: 20130402, end: 20130604
  5. DIANEAL LOW CALCIUM [Suspect]
     Indication: PERITONEAL DIALYSIS
     Route: 033
     Dates: start: 20130208, end: 20130402
  6. DIANEAL LOW CALCIUM [Suspect]
     Route: 033
     Dates: start: 20130402, end: 20130604
  7. DIANEAL LOW CALCIUM (ULTRABAG) [Suspect]
     Indication: PERITONEAL DIALYSIS
     Route: 033
     Dates: start: 20130208, end: 20130604
  8. DIANEAL LOW CALCIUM (ULTRABAG) [Suspect]
     Indication: PERITONEAL DIALYSIS
     Route: 033
     Dates: start: 20130208, end: 20130604

REACTIONS (3)
  - Mental status changes [Recovered/Resolved]
  - Hernia [Recovering/Resolving]
  - Gastrointestinal necrosis [Recovering/Resolving]
